FAERS Safety Report 14553728 (Version 3)
Quarter: 2019Q4

REPORT INFORMATION
  Report Type: Spontaneous
  Country: NL (occurrence: NL)
  Receive Date: 20180220
  Receipt Date: 20191025
  Transmission Date: 20200122
  Serious: Yes (Death, Life-Threatening, Hospitalization, Other)
  Sender: FDA-Public Use
  Company Number: NL-BRISTOL-MYERS SQUIBB COMPANY-BMS-2018-010896

PATIENT
  Age: 68 Year
  Sex: Male

DRUGS (6)
  1. INFLIXIMAB [Suspect]
     Active Substance: INFLIXIMAB
     Indication: LYMPHOCYTIC HYPOPHYSITIS
     Route: 065
  2. INFLIXIMAB [Suspect]
     Active Substance: INFLIXIMAB
     Indication: AUTOIMMUNE COLITIS
     Route: 065
  3. IPILIMUMAB [Suspect]
     Active Substance: IPILIMUMAB
     Indication: MALIGNANT MELANOMA
     Dosage: 3 MG/KG, UNK
     Route: 065
     Dates: start: 2014
  4. INFLIXIMAB [Suspect]
     Active Substance: INFLIXIMAB
     Indication: COLITIS
     Dosage: UNK
     Route: 065
     Dates: start: 20141203
  5. PREDNISOLONE. [Suspect]
     Active Substance: PREDNISOLONE
     Indication: LYMPHOCYTIC HYPOPHYSITIS
     Dosage: 2 MG/KG, UNK
     Route: 065
     Dates: start: 201412
  6. PREDNISOLONE. [Suspect]
     Active Substance: PREDNISOLONE
     Indication: AUTOIMMUNE COLITIS
     Route: 065

REACTIONS (5)
  - Colitis [Unknown]
  - Herpes simplex encephalitis [Fatal]
  - Hypophysitis [Unknown]
  - Disease recurrence [Fatal]
  - Status epilepticus [Fatal]

NARRATIVE: CASE EVENT DATE: 2014
